FAERS Safety Report 8514470-0 (Version None)
Quarter: 2012Q3

REPORT INFORMATION
  Report Type: 
  Country: None (occurrence: None)
  Receive Date: 20120717
  Receipt Date: 20120712
  Transmission Date: 20120928
  Serious: Yes (Other)
  Sender: FDA-Public Use
  Company Number: JP-PFIZER INC-2012127483

PATIENT
  Age: 64 Year
  Sex: Male

DRUGS (8)
  1. TRICHLORMETHIAZIDE [Concomitant]
     Indication: HYPERTENSION
     Dosage: 1 MG, 1X/DAY
     Route: 048
     Dates: start: 20100407
  2. MAGLAX [Concomitant]
     Indication: CONSTIPATION
     Dosage: 660 MG, 1X/DAY
     Route: 048
     Dates: start: 20110603
  3. LYRICA [Suspect]
     Indication: INTERVERTEBRAL DISC PROTRUSION
     Dosage: 75 MG, 2X/DAY
     Route: 048
     Dates: start: 20101203, end: 20120524
  4. REZALTAS [Suspect]
     Indication: HYPERTENSION
     Dosage: ONCE A DAY
     Route: 048
     Dates: start: 20100421
  5. SELBEX [Suspect]
     Indication: GASTRIC MUCOSAL LESION
     Dosage: UNK
     Route: 048
     Dates: start: 20100603
  6. ALLOPURINOL [Suspect]
     Indication: HYPERURICAEMIA
     Dosage: 100 MG, 1X/DAY
     Route: 048
     Dates: start: 20100528
  7. LOXONIN [Suspect]
     Indication: PAIN
     Dosage: UNK
     Route: 048
     Dates: start: 20110128
  8. LIVALO [Suspect]
     Indication: DYSLIPIDAEMIA
     Dosage: ONCE A DAY
     Route: 048
     Dates: start: 20110223

REACTIONS (5)
  - HAEMORRHAGE [None]
  - DELIRIUM [None]
  - NIGHTMARE [None]
  - PAIN IN EXTREMITY [None]
  - CONTUSION [None]
